FAERS Safety Report 21262172 (Version 1)
Quarter: 2022Q3

REPORT INFORMATION
  Report Type: Report from Study
  Country: CA (occurrence: CA)
  Receive Date: 20220827
  Receipt Date: 20220827
  Transmission Date: 20221027
  Serious: Yes (Other)
  Sender: FDA-Public Use
  Company Number: CA-HLS-202201536

PATIENT
  Age: 30 Year
  Sex: Female
  Weight: 59 kg

DRUGS (14)
  1. CLOZARIL [Suspect]
     Active Substance: CLOZAPINE
     Indication: Product used for unknown indication
     Dosage: 25 MG : TAKE 3 TABLETS ONCE DAILY AT BEDTIME IN ADDITION TO OTHER STRENGTH (TOTAL DOSE= 275MG)
     Route: 065
  2. CLOZARIL [Suspect]
     Active Substance: CLOZAPINE
     Indication: Product used for unknown indication
     Dosage: AT BEDTIME , 100MG TABLET : TAKE 2 TABLETS AT BEDTIME IN ADDITION TO OTHER STRENGTH (TOTAL DOSE = 27
     Route: 048
  3. ATROPINE SULFATE [Concomitant]
     Active Substance: ATROPINE SULFATE
     Indication: Salivary hypersecretion
     Dosage: DROPS , INSTILL 1 DROP NDER THE TONGUE TWICE DAILY WHEN NEEDED.
     Route: 065
  4. CLONAZEPAM [Concomitant]
     Active Substance: CLONAZEPAM
     Indication: Product used for unknown indication
     Dosage: TAKE 1 TO 2 TABLETS AT BEDTIME WHEN NEEDED.
     Route: 065
  5. LITHIUM CARBONATE [Concomitant]
     Active Substance: LITHIUM CARBONATE
     Indication: Product used for unknown indication
     Dosage: 1 CAPSULE AT BEDTIME IN ADDITION TO OTHER STRENGTH FOR A TOTAL DAILY DOSE.
     Route: 065
  6. LITHIUM CARBONATE [Concomitant]
     Active Substance: LITHIUM CARBONATE
     Indication: Product used for unknown indication
     Dosage: TAKE 2 CAPSULE AT BEDTIME (IN ADDITION TO OTHER STRENGTH TOTAL : 750MG )
     Route: 065
  7. METFORMIN HYDROCHLORIDE [Concomitant]
     Active Substance: METFORMIN HYDROCHLORIDE
     Indication: Product used for unknown indication
     Dosage: TAKE 1 TABLET TWICE DAILY.
     Route: 065
  8. FLUVOXAMINE [Concomitant]
     Active Substance: FLUVOXAMINE
     Indication: Product used for unknown indication
     Dosage: ONE-HALF (1/2) TABLET AT BEDTIME
     Route: 065
  9. LORAZEPAM [Concomitant]
     Active Substance: LORAZEPAM
     Indication: Product used for unknown indication
     Dosage: UNDER THE TONGUE TWICE DAILY WHEN REQUIRED
     Route: 060
  10. BENZTROPINE MESYLATE [Concomitant]
     Active Substance: BENZTROPINE MESYLATE
     Indication: Product used for unknown indication
     Dosage: TAKE 1 TO 2 TABLETS TWICE DAILY WHEN NEEDED
     Route: 065
  11. LEVOMEPROMAZINE MALEATE [Concomitant]
     Active Substance: LEVOMEPROMAZINE MALEATE
     Indication: Product used for unknown indication
     Dosage: TAKE 1 TABLET AT BEDTIME WHEN NEEDED
     Route: 065
  12. LEVOMEPROMAZINE MALEATE [Concomitant]
     Active Substance: LEVOMEPROMAZINE MALEATE
     Indication: Product used for unknown indication
     Dosage: TAKE 1 TABLET AT BEDTIME
     Route: 065
  13. DOCUSATE SODIUM [Concomitant]
     Active Substance: DOCUSATE SODIUM
     Indication: Faeces soft
     Dosage: TAKE 1 CAPSULE TWICE DAILY
     Route: 065
  14. OLANZAPINE [Concomitant]
     Active Substance: OLANZAPINE
     Indication: Product used for unknown indication
     Dosage: DISSOLVE 2 TABLETS (20MG) UNDER THE TONGUE AT BEDTIME
     Route: 060

REACTIONS (4)
  - Atrioventricular block [Unknown]
  - Electrocardiogram QRS complex abnormal [Unknown]
  - Electrocardiogram QT prolonged [Unknown]
  - Tachycardia [Unknown]

NARRATIVE: CASE EVENT DATE: 20220302
